FAERS Safety Report 7099000-5 (Version None)
Quarter: 2010Q4

REPORT INFORMATION
  Report Type: 
  Country: None (occurrence: None)
  Receive Date: 20101112
  Receipt Date: 20101104
  Transmission Date: 20110411
  Serious: Yes (Other)
  Sender: FDA-Public Use
  Company Number: US-JNJCH-2010025657

PATIENT
  Sex: Female
  Weight: 90.7 kg

DRUGS (4)
  1. BENADRYL [Suspect]
     Indication: HYPERSENSITIVITY
     Dosage: TEXT:ONE TABLET TWICE A DAY
     Route: 048
  2. ANTICOAGULANTS [Concomitant]
     Indication: ANTICOAGULANT THERAPY
     Dosage: TEXT:UNKNOWN
     Route: 065
  3. CARDIAC THERAPY [Concomitant]
     Indication: CARDIAC DISORDER
     Dosage: TEXT:UNKNOWN
     Route: 065
  4. NEXIUM [Concomitant]
     Indication: GASTRIC DISORDER
     Dosage: TEXT:UNKNOWN
     Route: 065

REACTIONS (3)
  - CARDIAC OPERATION [None]
  - DEHYDRATION [None]
  - MYOCARDIAL INFARCTION [None]
